FAERS Safety Report 13538670 (Version 1)
Quarter: 2017Q2

REPORT INFORMATION
  Report Type: Spontaneous
  Country: US (occurrence: US)
  Receive Date: 20170511
  Receipt Date: 20170511
  Transmission Date: 20170830
  Serious: Yes (Hospitalization)
  Sender: FDA-Public Use
  Company Number: None

PATIENT
  Age: 64 Year
  Sex: Female
  Weight: 77 kg

DRUGS (1)
  1. CANAGAFLOZIN [Suspect]
     Active Substance: CANAGLIFLOZIN
     Indication: TYPE 2 DIABETES MELLITUS

REACTIONS (6)
  - Pneumonia [None]
  - Abdominal pain [None]
  - Acute kidney injury [None]
  - Hypophagia [None]
  - Diabetic ketoacidosis [None]
  - Atrial fibrillation [None]

NARRATIVE: CASE EVENT DATE: 20160716
